FAERS Safety Report 13287967 (Version 6)
Quarter: 2022Q2

REPORT INFORMATION
  Report Type: Spontaneous
  Country: CA (occurrence: CA)
  Receive Date: 20170302
  Receipt Date: 20220415
  Transmission Date: 20220721
  Serious: Yes (Death, Other)
  Sender: FDA-Public Use
  Company Number: CA-BAXTER-2017BAX008931

PATIENT
  Age: 33 Year
  Sex: Female

DRUGS (49)
  1. CYCLOPHOSPHAMIDE [Suspect]
     Active Substance: CYCLOPHOSPHAMIDE
     Indication: Choriocarcinoma
     Dosage: 6 CYCLES
     Route: 042
  2. CYCLOPHOSPHAMIDE [Suspect]
     Active Substance: CYCLOPHOSPHAMIDE
     Indication: Metastases to lung
  3. CYCLOPHOSPHAMIDE [Suspect]
     Active Substance: CYCLOPHOSPHAMIDE
     Indication: Metastases to skin
  4. CYCLOPHOSPHAMIDE [Suspect]
     Active Substance: CYCLOPHOSPHAMIDE
     Indication: Metastases to central nervous system
  5. CYCLOPHOSPHAMIDE [Suspect]
     Active Substance: CYCLOPHOSPHAMIDE
     Indication: Chemotherapy
  6. CYCLOPHOSPHAMIDE [Suspect]
     Active Substance: CYCLOPHOSPHAMIDE
     Indication: Metastatic choriocarcinoma
  7. DOXORUBICIN HYDROCHLORIDE [Suspect]
     Active Substance: DOXORUBICIN HYDROCHLORIDE
     Indication: Choriocarcinoma
     Dosage: 6 CYCLES
     Route: 065
  8. DOXORUBICIN HYDROCHLORIDE [Suspect]
     Active Substance: DOXORUBICIN HYDROCHLORIDE
     Indication: Recurrent cancer
  9. ETOPOSIDE [Suspect]
     Active Substance: ETOPOSIDE
     Indication: Choriocarcinoma
     Dosage: EMA-CO REGIMEN. 6 CYCLES
     Route: 065
  10. ETOPOSIDE [Suspect]
     Active Substance: ETOPOSIDE
     Indication: Metastases to lung
     Dosage: EMA-CE REGIMEN. 4 CYCLES
     Route: 065
  11. ETOPOSIDE [Suspect]
     Active Substance: ETOPOSIDE
     Indication: Metastases to skin
  12. ETOPOSIDE [Suspect]
     Active Substance: ETOPOSIDE
     Indication: Metastases to central nervous system
  13. ETOPOSIDE [Suspect]
     Active Substance: ETOPOSIDE
     Indication: Choriocarcinoma
  14. ETOPOSIDE [Suspect]
     Active Substance: ETOPOSIDE
     Indication: Recurrent cancer
  15. ETOPOSIDE [Suspect]
     Active Substance: ETOPOSIDE
     Indication: Metastatic neoplasm
  16. METHOTREXATE SODIUM [Suspect]
     Active Substance: METHOTREXATE SODIUM
     Indication: Choriocarcinoma
     Dosage: EMA-CO REGIMEN. 6 CYCLES
     Route: 065
  17. METHOTREXATE SODIUM [Suspect]
     Active Substance: METHOTREXATE SODIUM
     Indication: Metastases to lung
     Dosage: EMA-CE REGIMEN. 4 CYCLES
     Route: 065
  18. METHOTREXATE SODIUM [Suspect]
     Active Substance: METHOTREXATE SODIUM
     Indication: Metastases to skin
  19. METHOTREXATE SODIUM [Suspect]
     Active Substance: METHOTREXATE SODIUM
     Indication: Metastases to central nervous system
  20. METHOTREXATE SODIUM [Suspect]
     Active Substance: METHOTREXATE SODIUM
     Indication: Choriocarcinoma
  21. METHOTREXATE SODIUM [Suspect]
     Active Substance: METHOTREXATE SODIUM
     Indication: Chemotherapy
  22. METHOTREXATE SODIUM [Suspect]
     Active Substance: METHOTREXATE SODIUM
     Indication: Recurrent cancer
  23. COSMEGEN [Suspect]
     Active Substance: DACTINOMYCIN
     Indication: Recurrent cancer
     Dosage: EMA-CO REGIMEN. 6 CYCLES
     Route: 042
  24. COSMEGEN [Suspect]
     Active Substance: DACTINOMYCIN
     Indication: Choriocarcinoma
     Dosage: EMA-CE REGIMEN. 4 CYCLES
     Route: 065
  25. COSMEGEN [Suspect]
     Active Substance: DACTINOMYCIN
     Indication: Chemotherapy
  26. COSMEGEN [Suspect]
     Active Substance: DACTINOMYCIN
     Indication: Metastases to central nervous system
  27. COSMEGEN [Suspect]
     Active Substance: DACTINOMYCIN
     Indication: Metastases to lung
  28. COSMEGEN [Suspect]
     Active Substance: DACTINOMYCIN
     Indication: Choriocarcinoma
  29. COSMEGEN [Suspect]
     Active Substance: DACTINOMYCIN
     Indication: Metastases to skin
  30. VINCRISTINE SULFATE [Suspect]
     Active Substance: VINCRISTINE SULFATE
     Indication: Choriocarcinoma
     Dosage: EMA-CO REGIMEN. 6 CYCLES
     Route: 065
  31. VINCRISTINE SULFATE [Suspect]
     Active Substance: VINCRISTINE SULFATE
     Indication: Metastases to lung
  32. VINCRISTINE SULFATE [Suspect]
     Active Substance: VINCRISTINE SULFATE
     Indication: Metastases to skin
  33. VINCRISTINE SULFATE [Suspect]
     Active Substance: VINCRISTINE SULFATE
     Indication: Metastases to central nervous system
  34. VINCRISTINE SULFATE [Suspect]
     Active Substance: VINCRISTINE SULFATE
     Indication: Chemotherapy
  35. VINCRISTINE SULFATE [Suspect]
     Active Substance: VINCRISTINE SULFATE
     Indication: Metastatic choriocarcinoma
  36. CISPLATIN [Suspect]
     Active Substance: CISPLATIN
     Indication: Choriocarcinoma
     Dosage: 4 CYCLES- EMA- CE REGIMEN
     Route: 042
  37. CISPLATIN [Suspect]
     Active Substance: CISPLATIN
     Indication: Metastases to lung
  38. CISPLATIN [Suspect]
     Active Substance: CISPLATIN
     Indication: Metastases to skin
  39. CISPLATIN [Suspect]
     Active Substance: CISPLATIN
     Indication: Metastases to central nervous system
  40. CISPLATIN [Suspect]
     Active Substance: CISPLATIN
     Indication: Chemotherapy
  41. CISPLATIN [Suspect]
     Active Substance: CISPLATIN
     Indication: Choriocarcinoma
  42. CISPLATIN [Suspect]
     Active Substance: CISPLATIN
     Indication: Recurrent cancer
  43. ADRIAMYCIN [Suspect]
     Active Substance: DOXORUBICIN HYDROCHLORIDE
     Indication: Invasive ductal breast carcinoma
     Dosage: DOSAGE FORM SOLUTION INTRAVENOUS?AT CHEMOTHERAPY 2 CYCLES
     Route: 042
  44. TAXOTERE [Suspect]
     Active Substance: DOCETAXEL
     Indication: Invasive ductal breast carcinoma
     Dosage: DOSAGE FORM SOLUTION INTRAVENOUS?AT CHEMOTHERAPY 6 CYCLES
     Route: 042
  45. HERCEPTIN [Suspect]
     Active Substance: TRASTUZUMAB
     Indication: Invasive ductal breast carcinoma
     Dosage: 7 CYCLES
     Route: 065
  46. TAXOL [Suspect]
     Active Substance: PACLITAXEL
     Indication: Choriocarcinoma
     Dosage: DOSAGE FORM SOLUTION LIQUID INTRAVENOUS?4 CYCLES
     Route: 041
  47. TAXOL [Suspect]
     Active Substance: PACLITAXEL
     Indication: Recurrent cancer
     Dosage: DOSAGE FORM SOLUTION INTRAVENOUS
     Route: 065
  48. GEMCITABINE HYDROCHLORIDE [Suspect]
     Active Substance: GEMCITABINE HYDROCHLORIDE
     Indication: Choriocarcinoma
     Dosage: DOSAGE FORM: NOT SPECIFIED?3 CYCLES
     Route: 065
  49. GEMCITABINE HYDROCHLORIDE [Suspect]
     Active Substance: GEMCITABINE HYDROCHLORIDE
     Indication: Recurrent cancer
     Dosage: DOSAGE FORM: NOT SPECIFIED
     Route: 065

REACTIONS (1)
  - Acute myeloid leukaemia [Fatal]
